FAERS Safety Report 6817984-4 (Version None)
Quarter: 2010Q3

REPORT INFORMATION
  Report Type: 
  Country: None (occurrence: None)
  Receive Date: 20100706
  Receipt Date: 20100625
  Transmission Date: 20110219
  Serious: Yes (Hospitalization, Other)
  Sender: FDA-Public Use
  Company Number: US-AMGEN-QUU416607

PATIENT
  Sex: Female

DRUGS (3)
  1. NPLATE [Suspect]
     Indication: IDIOPATHIC THROMBOCYTOPENIC PURPURA
     Dates: start: 20080428, end: 20090407
  2. LANTUS [Concomitant]
  3. INSULIN LISPRO [Concomitant]

REACTIONS (19)
  - CHEST INJURY [None]
  - DIABETES MELLITUS INADEQUATE CONTROL [None]
  - DIABETIC KETOACIDOSIS [None]
  - ESSENTIAL HYPERTENSION [None]
  - GINGIVITIS [None]
  - HYPERGLYCAEMIA [None]
  - HYPONATRAEMIA [None]
  - HYPOVOLAEMIA [None]
  - JAW DISORDER [None]
  - JOINT INJURY [None]
  - MYOCARDIAL ISCHAEMIA [None]
  - PAIN IN JAW [None]
  - PLATELET COUNT DECREASED [None]
  - ROAD TRAFFIC ACCIDENT [None]
  - SYNCOPE [None]
  - TOBACCO ABUSE [None]
  - TRANSIENT ISCHAEMIC ATTACK [None]
  - URINARY INCONTINENCE [None]
  - URINARY TRACT INFECTION [None]
